FAERS Safety Report 22210251 (Version 1)
Quarter: 2023Q2

REPORT INFORMATION
  Report Type: Spontaneous
  Country: GB (occurrence: GB)
  Receive Date: 20230414
  Receipt Date: 20230414
  Transmission Date: 20230721
  Serious: Yes (Other)
  Sender: FDA-Public Use
  Company Number: None

PATIENT
  Age: 38 Year
  Sex: Female
  Weight: 62 kg

DRUGS (19)
  1. CIPROFLOXACIN [Suspect]
     Active Substance: CIPROFLOXACIN
     Indication: Product used for unknown indication
     Dosage: AS DIRECTED
     Dates: start: 20211018
  2. FEXOFENADINE [Concomitant]
     Active Substance: FEXOFENADINE HYDROCHLORIDE
     Indication: Product used for unknown indication
     Dates: start: 20211018
  3. AZITHROMYCIN [Concomitant]
     Active Substance: AZITHROMYCIN
     Indication: Product used for unknown indication
     Dosage: BLOOD TETS
     Dates: start: 20211018
  4. CARBOCYSTEINE [Concomitant]
     Active Substance: CARBOCYSTEINE
     Indication: Product used for unknown indication
     Dosage: TAKE TWO (750MG) LETTER (REDACTED)
     Dates: start: 20211018
  5. DESOGESTREL [Concomitant]
     Active Substance: DESOGESTREL
     Indication: Product used for unknown indication
     Dosage: AS DIRECTED BY CONSULTANT GYNAEC
     Dates: start: 20230304
  6. CETRABEN EMOLLIENT CREAM [Concomitant]
     Indication: Product used for unknown indication
     Dosage: AS DIRECTED
     Dates: start: 20211018
  7. DIBUCAINE [Concomitant]
     Active Substance: DIBUCAINE
     Indication: Product used for unknown indication
     Dates: start: 20230308
  8. AMOXICILLIN\CLAVULANATE POTASSIUM [Concomitant]
     Active Substance: AMOXICILLIN\CLAVULANATE POTASSIUM
     Indication: Product used for unknown indication
     Dosage: FOR 2 WEEKS W
     Dates: start: 20211018
  9. COTRIMOXAZOLE [Concomitant]
     Active Substance: SULFAMETHOXAZOLE\TRIMETHOPRIM
     Indication: Infection
     Dosage: TAKE 2 TABLETS (960MG), TWICE A DAY FOR INFECTION
     Dates: start: 20230328
  10. CHOLECALCIFEROL [Concomitant]
     Active Substance: CHOLECALCIFEROL
     Indication: Product used for unknown indication
     Dates: start: 20220826
  11. COLISTIMETHATE [Concomitant]
     Active Substance: COLISTIMETHATE SODIUM
     Indication: Product used for unknown indication
     Dosage: VIAL (REDACTED) HOSP WHEN SP
     Dates: start: 20211018
  12. FLUTICASONE PROPIONATE [Concomitant]
     Active Substance: FLUTICASONE PROPIONATE
     Indication: Product used for unknown indication
     Dosage: APPLY HALF AN AMPOULE (6 DROPS) TO EACH SIDE OF
     Dates: start: 20211018
  13. HYDROXYCHLOROQUINE SULFATE [Concomitant]
     Active Substance: HYDROXYCHLOROQUINE SULFATE
     Indication: Product used for unknown indication
     Dosage: ANNUAL OPTHALMOLOGY CHECKS REQUEST
     Dates: start: 20211018
  14. MEBEVERINE HYDROCHLORIDE [Concomitant]
     Active Substance: MEBEVERINE HYDROCHLORIDE
     Indication: Product used for unknown indication
     Dosage: TWENTY MINUTE
     Dates: start: 20211018, end: 20230203
  15. MEFENAMIC ACID [Concomitant]
     Active Substance: MEFENAMIC ACID
     Indication: Product used for unknown indication
     Dosage: DURING FIRST 3 DAYS OF PERIOD
     Dates: start: 20230103, end: 20230203
  16. SODIUM CHLORIDE [Concomitant]
     Active Substance: SODIUM CHLORIDE
     Indication: Product used for unknown indication
     Dosage: USE 4ML TO RECONSTITUTE EACH VIAL OF COLOMYCIN
     Dates: start: 20211029
  17. TRANEXAMIC ACID [Concomitant]
     Active Substance: TRANEXAMIC ACID
     Indication: Product used for unknown indication
     Dosage: DURING PERIOD
     Dates: start: 20220809
  18. UVISTAT-L [Concomitant]
     Indication: Product used for unknown indication
     Dosage: USE DAILY AS PER LUPUS CLINIC LETTER (REDACTED)
     Dates: start: 20220826
  19. VENTOLIN [Concomitant]
     Active Substance: ALBUTEROL SULFATE
     Indication: Product used for unknown indication
     Dosage: INHALE TWO PUFFS UP TO FOUR TIMES A DAY AS REQUIRED
     Route: 055
     Dates: start: 20211018

REACTIONS (2)
  - Myopathy [Recovering/Resolving]
  - Myalgia [Unknown]
